FAERS Safety Report 9739483 (Version 2)
Quarter: 2014Q1

REPORT INFORMATION
  Report Type: Spontaneous
  Country: US (occurrence: US)
  Receive Date: 20131209
  Receipt Date: 20140120
  Transmission Date: 20141002
  Serious: Yes (Other)
  Sender: FDA-Public Use
  Company Number: US-SA-2013SA126918

PATIENT
  Age: 77 Year
  Sex: Female
  Weight: 68 kg

DRUGS (2)
  1. LOVENOX [Suspect]
     Route: 058
     Dates: start: 20131115
  2. LOVENOX [Suspect]
     Route: 065
     Dates: start: 20131121, end: 20131214

REACTIONS (2)
  - Gait disturbance [Unknown]
  - Pain [Unknown]
